FAERS Safety Report 6141471-2 (Version None)
Quarter: 2009Q2

REPORT INFORMATION
  Report Type: 
  Country: None (occurrence: None)
  Receive Date: 20090402
  Receipt Date: 20090324
  Transmission Date: 20091009
  Serious: Yes (Other)
  Sender: FDA-Public Use
  Company Number: PHHY2009BR11432

PATIENT
  Age: 86 Year
  Sex: Female

DRUGS (2)
  1. DIOVAN [Suspect]
     Indication: HYPERTENSION
     Dosage: 320 MG, DAILY
     Route: 048
     Dates: start: 20080901
  2. INDAPAMIDE [Concomitant]
     Dosage: 1 DF, DAILY
     Route: 048

REACTIONS (3)
  - FALL [None]
  - FRACTURE [None]
  - JOINT DISLOCATION [None]
